FAERS Safety Report 5092348-5 (Version None)
Quarter: 2006Q3

REPORT INFORMATION
  Report Type: 
  Country: None (occurrence: None)
  Receive Date: 20060825
  Receipt Date: 20060809
  Transmission Date: 20061208
  Serious: Yes (Other)
  Sender: FDA-Public Use
  Company Number: US200606004641

PATIENT
  Age: 44 Year
  Sex: Female
  Weight: 64.9 kg

DRUGS (6)
  1. CYMBALTA [Suspect]
     Indication: NEURALGIA
     Dosage: SEE IMAGE
     Dates: start: 20060101
  2. CYMBALTA [Suspect]
     Indication: NEURALGIA
     Dosage: SEE IMAGE
     Dates: start: 20060528
  3. CYMBALTA [Suspect]
  4. ATIVAN [Concomitant]
  5. PROGESTERONE [Concomitant]
  6. ESTRACE [Concomitant]

REACTIONS (9)
  - CONSTIPATION [None]
  - DIABETES MELLITUS [None]
  - DRUG DOSE OMISSION [None]
  - IRRITABILITY [None]
  - MOVEMENT DISORDER [None]
  - NAUSEA [None]
  - NIGHT SWEATS [None]
  - PAIN [None]
  - PAIN IN EXTREMITY [None]
